FAERS Safety Report 24877855 (Version 1)
Quarter: 2025Q1

REPORT INFORMATION
  Report Type: Other
  Country: GB (occurrence: GB)
  Receive Date: 20250123
  Receipt Date: 20250123
  Transmission Date: 20250409
  Serious: Yes (Other)
  Sender: STRIDES
  Company Number: None

PATIENT
  Age: 16 Year
  Sex: Male
  Weight: 70 kg

DRUGS (1)
  1. FLUOXETINE [Suspect]
     Active Substance: FLUOXETINE HYDROCHLORIDE
     Indication: Product used for unknown indication
     Route: 065
     Dates: start: 20241119

REACTIONS (1)
  - Dysphemia [Not Recovered/Not Resolved]

NARRATIVE: CASE EVENT DATE: 20241203
